FAERS Safety Report 13136151 (Version 2)
Quarter: 2024Q4

REPORT INFORMATION
  Report Type: Spontaneous
  Country: CZ (occurrence: CZ)
  Receive Date: 20170121
  Receipt Date: 20241226
  Transmission Date: 20250115
  Serious: Yes (Death, Life-Threatening, Other)
  Sender: ACCORD
  Company Number: CZ-MLMSERVICE-20170104-0481565-1

PATIENT
  Age: 63 Year
  Sex: Male

DRUGS (12)
  1. MYCOPHENOLIC ACID [Suspect]
     Active Substance: MYCOPHENOLIC ACID
     Indication: Immunosuppression
     Dosage: DOSE REDUCED TO 500 MG TWICE DAILY
  2. TACROLIMUS [Suspect]
     Active Substance: TACROLIMUS
     Indication: Heart transplant
     Dosage: DOSE REDUCED THEN TEMPORARILY DISCONTINUED THEN REINTRODUCED IN REDUCED DOSE TO 1 MG DAILY
  3. PREDNISONE [Suspect]
     Active Substance: PREDNISONE
     Indication: Immunosuppression
     Dosage: REDUCED TO 20 MG TWICE DAILY THEN 20 + 10 MG THEN ONLY 10 MG
  4. PIPERACILLIN AND TAZOBACTAM [Concomitant]
     Active Substance: PIPERACILLIN SODIUM\TAZOBACTAM SODIUM
     Indication: Cytomegalovirus infection
     Route: 042
  5. VORICONAZOLE [Concomitant]
     Active Substance: VORICONAZOLE
     Indication: Aspergillus infection
     Dosage: REDUCE VORICONAZOLE DUE TO TOXIC LEVELS OF 5 MG/L TO DOSE OF 300 MG/DAY
     Dates: start: 20120525
  6. VALGANCICLOVIR [Concomitant]
     Active Substance: VALGANCICLOVIR
     Indication: Cytomegalovirus infection
  7. AMPHOTERICIN B [Concomitant]
     Active Substance: AMPHOTERICIN B
     Indication: Cytomegalovirus infection
  8. VANCOMYCIN [Concomitant]
     Active Substance: VANCOMYCIN
     Indication: Sepsis
  9. TACROLIMUS [Suspect]
     Active Substance: TACROLIMUS
     Indication: Immunosuppression
     Dosage: DOSE REDUCED THEN TEMPORARILY DISCONTINUED THEN REINTRODUCED IN REDUCED DOSE TO 1 MG DAILY
  10. TACROLIMUS [Suspect]
     Active Substance: TACROLIMUS
     Indication: Heart transplant
     Dosage: DOSE REDUCED THEN TEMPORARILY DISCONTINUED THEN REINTRODUCED IN REDUCED DOSE TO 1 MG DAILY
  11. MYCOPHENOLIC ACID [Suspect]
     Active Substance: MYCOPHENOLIC ACID
     Indication: Immunosuppression
     Dosage: DOSE REDUCED TO 500 MG TWICE DAILY
  12. MYCOPHENOLIC ACID [Suspect]
     Active Substance: MYCOPHENOLIC ACID
     Indication: Immunosuppression
     Dosage: DOSE REDUCED TO 500 MG TWICE DAILY

REACTIONS (4)
  - Bronchopulmonary aspergillosis [Fatal]
  - Sepsis [Fatal]
  - Leukopenia [Not Recovered/Not Resolved]
  - Neutropenia [Not Recovered/Not Resolved]
